FAERS Safety Report 8520916-4 (Version None)
Quarter: 2012Q3

REPORT INFORMATION
  Report Type: 
  Country: None (occurrence: None)
  Receive Date: 20120719
  Receipt Date: 20120717
  Transmission Date: 20120928
  Serious: No
  Sender: FDA-Public Use
  Company Number: US-PFIZER INC-2012159907

PATIENT
  Sex: Female
  Weight: 83.9 kg

DRUGS (10)
  1. CHANTIX [Suspect]
     Indication: SMOKING CESSATION THERAPY
     Dosage: 0.5 MG, DAILY
     Route: 048
     Dates: start: 20120601, end: 20120601
  2. CHANTIX [Suspect]
     Dosage: 0.5 MG, 2X/DAY
     Route: 048
     Dates: start: 20120601
  3. LORAZEPAM [Suspect]
     Indication: ANXIETY
     Dosage: 2 MG, 2X/DAY
  4. GEODON [Concomitant]
     Indication: BEREAVEMENT
     Dosage: 20 MG, 2X/DAY
  5. LYRICA [Concomitant]
     Indication: FIBROMYALGIA
     Dosage: 150 MG, 3X/DAY
  6. LOVASTATIN [Concomitant]
     Indication: BLOOD CHOLESTEROL INCREASED
     Dosage: 40 MG, DAILY
  7. CYMBALTA [Concomitant]
     Indication: DEPRESSION
     Dosage: 120 MG, DAILY
  8. CYCLOBENZAPRINE HYDROCHLORIDE [Concomitant]
     Indication: INTERVERTEBRAL DISC PROTRUSION
     Dosage: UNK, AS NEEDED
  9. LIDODERM [Suspect]
     Indication: BACK DISORDER
     Dosage: UNK
     Dates: start: 20120101
  10. CLONAZEPAM [Concomitant]
     Indication: ANXIETY
     Dosage: 1 MG, 2X/DAY

REACTIONS (3)
  - OEDEMA PERIPHERAL [None]
  - CIRCUMSTANCE OR INFORMATION CAPABLE OF LEADING TO MEDICATION ERROR [None]
  - DRUG INEFFECTIVE [None]
